FAERS Safety Report 24972642 (Version 1)
Quarter: 2025Q1

REPORT INFORMATION
  Report Type: Report from Study
  Country: US (occurrence: None)
  Receive Date: 20250215
  Receipt Date: 20250215
  Transmission Date: 20250409
  Serious: Yes (Other)
  Sender: ALEXION PHARMACEUTICALS
  Company Number: US-AstraZeneca-2013SE08230

PATIENT
  Age: 85 Year

DRUGS (1)
  1. NEXIUM [Suspect]
     Active Substance: ESOMEPRAZOLE MAGNESIUM

REACTIONS (8)
  - Diabetes mellitus [Unknown]
  - Fall [Unknown]
  - Limb injury [Unknown]
  - Dyspepsia [Unknown]
  - Hypoacusis [Unknown]
  - Ligament rupture [Unknown]
  - Gastrooesophageal reflux disease [Unknown]
  - Product dose omission issue [Unknown]
